FAERS Safety Report 25691718 (Version 1)
Quarter: 2025Q3

REPORT INFORMATION
  Report Type: Report from Study
  Country: CA (occurrence: CA)
  Receive Date: 20250818
  Receipt Date: 20250818
  Transmission Date: 20251021
  Serious: Yes (Other)
  Sender: ABBVIE
  Company Number: CA-ABBVIE-6414478

PATIENT
  Sex: Male

DRUGS (1)
  1. RINVOQ [Suspect]
     Active Substance: UPADACITINIB
     Indication: Colitis ulcerative
     Dosage: FORM STRENGTH:30 MG
     Route: 048

REACTIONS (5)
  - Blindness [Unknown]
  - Psoriasis [Recovered/Resolved]
  - Skin fissures [Recovered/Resolved]
  - Retinal degeneration [Unknown]
  - Visual impairment [Recovering/Resolving]
